FAERS Safety Report 5346870-4 (Version None)
Quarter: 2007Q2

REPORT INFORMATION
  Report Type: 
  Country: None (occurrence: None)
  Receive Date: 20070604
  Receipt Date: 20070425
  Transmission Date: 20071010
  Serious: Yes (Hospitalization)
  Sender: FDA-Public Use
  Company Number: 6032955

PATIENT
  Age: 77 Year
  Sex: Male

DRUGS (4)
  1. CIPROFLOXACIN [Suspect]
     Indication: DEVICE RELATED INFECTION
     Dosage: 1500,00 MG (750 MG, 2 IN 1 D)
  2. DIPYRIDAMOLE [Concomitant]
  3. LISINOPRIL [Concomitant]
  4. FENOTEROL-IPRATROPIUM                         (FENOTEROL, IPRATROPIUM) [Concomitant]

REACTIONS (3)
  - BLOOD CREATININE INCREASED [None]
  - MALAISE [None]
  - NEPHRITIS INTERSTITIAL [None]
